FAERS Safety Report 14445733 (Version 1)
Quarter: 2018Q1

REPORT INFORMATION
  Report Type: Spontaneous
  Country: US (occurrence: US)
  Receive Date: 20180126
  Receipt Date: 20180126
  Transmission Date: 20180509
  Serious: Yes (Hospitalization, Other)
  Sender: FDA-Public Use
  Company Number: US-BEH-2018087056

PATIENT
  Age: 51 Year
  Sex: Female
  Weight: 97.96 kg

DRUGS (8)
  1. ACETAZOLAMIDE. [Concomitant]
     Active Substance: ACETAZOLAMIDE
  2. BERINERT [Suspect]
     Active Substance: HUMAN C1-ESTERASE INHIBITOR
     Indication: HEREDITARY ANGIOEDEMA
     Dosage: 1000 IU, AS DIRECTED
     Route: 042
     Dates: start: 20160705
  3. VITAMIN D2 [Concomitant]
     Active Substance: ERGOCALCIFEROL
  4. MULTIVITAMIN                       /00097801/ [Concomitant]
     Active Substance: VITAMINS
  5. BERINERT [Suspect]
     Active Substance: HUMAN C1-ESTERASE INHIBITOR
     Dosage: UNK
     Route: 042
  6. EPINEPHRINE. [Concomitant]
     Active Substance: EPINEPHRINE
  7. HAEGARDA [Concomitant]
     Active Substance: HUMAN C1-ESTERASE INHIBITOR
     Indication: PRODUCT USED FOR UNKNOWN INDICATION
  8. FIRAZYR [Concomitant]
     Active Substance: ICATIBANT ACETATE

REACTIONS (3)
  - Device related infection [Unknown]
  - Hereditary angioedema [Unknown]
  - Hereditary angioedema [Unknown]

NARRATIVE: CASE EVENT DATE: 20171218
